FAERS Safety Report 5255176-3 (Version None)
Quarter: 2007Q1

REPORT INFORMATION
  Report Type: 
  Country: None (occurrence: None)
  Receive Date: 20070305
  Receipt Date: 20070220
  Transmission Date: 20070707
  Serious: Yes (Death, Hospitalization)
  Sender: FDA-Public Use
  Company Number: JP-NOVOPROD-260638

PATIENT
  Age: 26 Year
  Sex: Male
  Weight: 54 kg

DRUGS (2)
  1. NOVOSEVEN [Suspect]
     Indication: CEREBRAL HAEMORRHAGE
     Dosage: 8 X 6 MG
     Route: 042
     Dates: start: 20070117, end: 20070118
  2. FEIBA [Concomitant]
     Dosage: 8 DOSES
     Route: 042
     Dates: start: 20070117, end: 20070121

REACTIONS (1)
  - CEREBRAL HAEMORRHAGE [None]
